FAERS Safety Report 12282593 (Version 1)
Quarter: 2016Q2

REPORT INFORMATION
  Report Type: Spontaneous
  Country: FR (occurrence: FR)
  Receive Date: 20160419
  Receipt Date: 20160419
  Transmission Date: 20160815
  Serious: Yes (Hospitalization)
  Sender: FDA-Public Use
  Company Number: PHHY2016FR050089

PATIENT
  Age: 49 Year
  Sex: Female

DRUGS (6)
  1. LOXEN LP [Suspect]
     Active Substance: NICARDIPINE
     Indication: POISONING DELIBERATE
     Dosage: 20 DF, ONCE/SINGLE
     Route: 048
     Dates: start: 20160306
  2. TAREG [Suspect]
     Active Substance: VALSARTAN
     Indication: POISONING DELIBERATE
     Dosage: 27 DF, ONCE/SINGLE
     Route: 048
     Dates: start: 20160306
  3. DOLIPRANE [Suspect]
     Active Substance: ACETAMINOPHEN
     Indication: POISONING DELIBERATE
     Dosage: 6 G, ONCE/SINGLE
     Route: 048
     Dates: start: 20160306
  4. ESOMEPRAZOLE [Suspect]
     Active Substance: ESOMEPRAZOLE
     Indication: POISONING DELIBERATE
     Dosage: 10 DF, ONCE/SINGLE
     Route: 048
     Dates: start: 20160306
  5. METEOSPASMYL [Suspect]
     Active Substance: ALVERINE CITRATE\DIMETHICONE
     Indication: POISONING DELIBERATE
     Dosage: 90 DF, ONCE/SINGLE
     Route: 048
     Dates: start: 20160306
  6. ARESTAL [Suspect]
     Active Substance: LOPERAMIDE OXIDE
     Indication: POISONING DELIBERATE
     Dosage: 10 DF, ONCE/SINGLE
     Route: 048
     Dates: start: 20160306

REACTIONS (3)
  - Hyperlactacidaemia [Recovered/Resolved]
  - Shock [Recovered/Resolved]
  - Hypotension [Recovered/Resolved]

NARRATIVE: CASE EVENT DATE: 20160306
